FAERS Safety Report 4582008-9 (Version None)
Quarter: 2005Q1

REPORT INFORMATION
  Report Type: 
  Country: None (occurrence: None)
  Receive Date: 20050214
  Receipt Date: 20050119
  Transmission Date: 20050727
  Serious: Yes (Death, Hospitalization)
  Sender: FDA-Public Use
  Company Number: BE-MERCK-0501BEL00017

PATIENT
  Age: 81 Year
  Sex: Female
  Weight: 49 kg

DRUGS (5)
  1. ZETIA [Suspect]
     Indication: HYPERCHOLESTEROLAEMIA
     Route: 048
  2. SIMVASTATIN [Concomitant]
     Indication: HYPERCHOLESTEROLAEMIA
     Route: 048
  3. FENTANYL [Concomitant]
     Route: 061
     Dates: start: 19980101
  4. GABAPENTIN [Concomitant]
     Route: 048
     Dates: start: 20010101
  5. PIRACETAM [Concomitant]
     Route: 048
     Dates: start: 19910101

REACTIONS (3)
  - FEMUR FRACTURE [None]
  - INTESTINAL OBSTRUCTION [None]
  - PULMONARY EMBOLISM [None]
